FAERS Safety Report 5385983-8 (Version None)
Quarter: 2007Q3

REPORT INFORMATION
  Report Type: 
  Country: None (occurrence: None)
  Receive Date: 20070709
  Receipt Date: 20070626
  Transmission Date: 20080115
  Serious: No
  Sender: FDA-Public Use
  Company Number: 2007SP0122535

PATIENT
  Sex: Female

DRUGS (1)
  1. ECURAL (MOMETASONE FUROATE (TOPICAL) (MOMETASONE FUROATE) [Suspect]
     Indication: DERMATITIS
     Dosage: 40 GM; TOP
     Route: 061

REACTIONS (3)
  - ADRENAL SUPPRESSION [None]
  - DRUG EXPOSURE DURING PREGNANCY [None]
  - LABORATORY TEST INTERFERENCE [None]
